FAERS Safety Report 4635729-3 (Version None)
Quarter: 2005Q2

REPORT INFORMATION
  Report Type: 
  Country: None (occurrence: None)
  Receive Date: 20050413
  Receipt Date: 20050331
  Transmission Date: 20051028
  Serious: Yes (Hospitalization)
  Sender: FDA-Public Use
  Company Number: HQWYE017402FEB05

PATIENT
  Age: 58 Year
  Sex: Female
  Weight: 54.4 kg

DRUGS (4)
  1. TACROLIMUS, CONTROL FOR SIROLIMUS (TACROLIMUS, CONTROL FOR SIROLIMUS, [Suspect]
     Indication: PROPHYLAXIS AGAINST TRANSPLANT REJECTION
     Dosage: DOSE/FREQUENCY, ORAL
     Route: 048
  2. CELLCEPT [Suspect]
     Indication: PROPHYLAXIS AGAINST TRANSPLANT REJECTION
     Dosage: ORAL
     Route: 048
  3. LIPITOR [Concomitant]
  4. CORTICOSTEROIDS [Suspect]
     Indication: PROPHYLAXIS AGAINST TRANSPLANT REJECTION
     Dosage: ORAL

REACTIONS (7)
  - ABDOMINAL PAIN [None]
  - COAGULOPATHY [None]
  - COMPLICATIONS OF TRANSPLANTED KIDNEY [None]
  - EROSIVE OESOPHAGITIS [None]
  - POST PROCEDURAL COMPLICATION [None]
  - ULTRASOUND SCAN ABNORMAL [None]
  - WOUND DRAINAGE [None]
